FAERS Safety Report 10207449 (Version 2)
Quarter: 2014Q2

REPORT INFORMATION
  Report Type: Spontaneous
  Country: US (occurrence: US)
  Receive Date: 20140530
  Receipt Date: 20140530
  Transmission Date: 20141212
  Serious: No
  Sender: FDA-Public Use
  Company Number: US-BRISTOL-MYERS SQUIBB COMPANY-19524453

PATIENT
  Age: 47 Year
  Sex: Male
  Weight: 74.83 kg

DRUGS (4)
  1. SUSTIVA [Suspect]
     Indication: HIV INFECTION
  2. EPZICOM [Concomitant]
  3. VIREAD [Concomitant]
  4. ACYCLOVIR [Concomitant]

REACTIONS (1)
  - Drug screen positive [Unknown]
